FAERS Safety Report 5837352-1 (Version None)
Quarter: 2008Q3

REPORT INFORMATION
  Report Type: 
  Country: None (occurrence: None)
  Receive Date: 20080807
  Receipt Date: 20080731
  Transmission Date: 20090109
  Serious: Yes (Other)
  Sender: FDA-Public Use
  Company Number: US-ELI_LILLY_AND_COMPANY-US200805000954

PATIENT
  Sex: Female
  Weight: 74.83 kg

DRUGS (12)
  1. BYETTA [Suspect]
     Indication: TYPE 2 DIABETES MELLITUS
     Dosage: 5 UG, 2/D
     Route: 058
     Dates: start: 20080429, end: 20080507
  2. BYETTA [Suspect]
     Dosage: 5 UG, DAILY (1/D)
     Route: 058
     Dates: start: 20080520
  3. BYETTA [Suspect]
     Dosage: 5 UG, DAILY (1/D)
     Route: 058
     Dates: start: 20080520
  4. FORTAMET [Concomitant]
     Indication: TYPE 2 DIABETES MELLITUS
     Dosage: 1000 MG, DAILY (1/D)
     Route: 048
  5. GLIPIZIDE [Concomitant]
     Indication: TYPE 2 DIABETES MELLITUS
     Dosage: 10 MG, 2/D
     Route: 048
  6. POTASSIUM CHLORIDE [Concomitant]
     Indication: DIABETES MELLITUS
     Dosage: 20 MEQ, 2/D
     Route: 048
  7. POTASSIUM CHLORIDE [Concomitant]
     Dosage: UNK, DAILY (1/D)
     Route: 048
  8. TRIAMTERENE [Concomitant]
     Dosage: 5 MG, DAILY (1/D)
     Route: 048
  9. NADOLOL [Concomitant]
     Indication: HYPERTENSION
     Dosage: UNK, EACH EVENING
     Route: 048
  10. ZETIA [Concomitant]
     Indication: HYPERTENSION
  11. ZOCOR [Concomitant]
     Dosage: UNK, EACH EVENING
  12. ENABLEX                            /01760402/ [Concomitant]
     Dosage: UNK, UNKNOWN
     Route: 048

REACTIONS (17)
  - ANOREXIA [None]
  - BLOOD GLUCOSE INCREASED [None]
  - CHILLS [None]
  - COLD SWEAT [None]
  - CONSTIPATION [None]
  - DIARRHOEA [None]
  - DIZZINESS [None]
  - FEELING HOT [None]
  - HEADACHE [None]
  - HOT FLUSH [None]
  - HYPERHIDROSIS [None]
  - LOSS OF CONSCIOUSNESS [None]
  - MALAISE [None]
  - NAUSEA [None]
  - PYREXIA [None]
  - TREMOR [None]
  - WEIGHT DECREASED [None]
